FAERS Safety Report 25514564 (Version 1)
Quarter: 2025Q3

REPORT INFORMATION
  Report Type: Spontaneous
  Country: US (occurrence: US)
  Receive Date: 20250703
  Receipt Date: 20250703
  Transmission Date: 20251020
  Serious: No
  Sender: RADIUS PHARM
  Company Number: US-RADIUS HEALTH INC.-2025US000415

PATIENT
  Age: 84 Year
  Sex: Female

DRUGS (1)
  1. TYMLOS [Suspect]
     Active Substance: ABALOPARATIDE
     Indication: Senile osteoporosis
     Route: 058
     Dates: start: 202501

REACTIONS (11)
  - Heart rate increased [Unknown]
  - Panic attack [Unknown]
  - Pruritus [Unknown]
  - Bone pain [Unknown]
  - Diarrhoea [Unknown]
  - Pollakiuria [Unknown]
  - Chest discomfort [Unknown]
  - Dizziness [Unknown]
  - Depression [Unknown]
  - Colitis [Unknown]
  - Fracture pain [Unknown]

NARRATIVE: CASE EVENT DATE: 20250101
